FAERS Safety Report 19289368 (Version 1)
Quarter: 2021Q2

REPORT INFORMATION
  Report Type: Report from Study
  Country: US (occurrence: US)
  Receive Date: 20210521
  Receipt Date: 20210521
  Transmission Date: 20210717
  Serious: Yes (Hospitalization, Other)
  Sender: FDA-Public Use
  Company Number: NVSC2021US106790

PATIENT
  Age: 68 Year
  Sex: Male

DRUGS (1)
  1. ENTRESTO [Suspect]
     Active Substance: SACUBITRIL\VALSARTAN
     Indication: CARDIAC FAILURE
     Dosage: 100 MG (49/51 MG), BID
     Route: 048
     Dates: start: 202011

REACTIONS (11)
  - Device malfunction [Unknown]
  - Tinnitus [Unknown]
  - Depression [Unknown]
  - Arthritis [Unknown]
  - Mental fatigue [Unknown]
  - Arrhythmia [Unknown]
  - Apathy [Unknown]
  - Fatigue [Unknown]
  - Dysstasia [Unknown]
  - Bone pain [Unknown]
  - Insomnia [Unknown]

NARRATIVE: CASE EVENT DATE: 202011
